FAERS Safety Report 12759662 (Version 1)
Quarter: 2016Q3

REPORT INFORMATION
  Report Type: Spontaneous
  Country: US (occurrence: US)
  Receive Date: 20160919
  Receipt Date: 20160919
  Transmission Date: 20161109
  Serious: No
  Sender: FDA-Public Use
  Company Number: US-BAYER-2016-181390

PATIENT
  Age: 75 Year
  Sex: Female

DRUGS (3)
  1. AZOPT [Concomitant]
     Active Substance: BRINZOLAMIDE
     Dosage: 2 DROPS/DAY
     Route: 031
  2. CLIMARA [Suspect]
     Active Substance: ESTRADIOL
     Dosage: UNK
     Route: 062
  3. TRAVATAN [Concomitant]
     Active Substance: TRAVOPROST
     Dosage: 1DROP/DAY
     Route: 031

REACTIONS (3)
  - Application site discolouration [Not Recovered/Not Resolved]
  - Application site rash [Recovering/Resolving]
  - Application site urticaria [Recovering/Resolving]

NARRATIVE: CASE EVENT DATE: 201609
